FAERS Safety Report 10133285 (Version 2)
Quarter: 2014Q2

REPORT INFORMATION
  Report Type: Spontaneous
  Country: HU (occurrence: HU)
  Receive Date: 20140428
  Receipt Date: 20140428
  Transmission Date: 20141212
  Serious: Yes (Other)
  Sender: FDA-Public Use
  Company Number: HU-ACTAVIS-2014-07593

PATIENT
  Age: 55 Year
  Sex: Male

DRUGS (5)
  1. METFORMIN (UNKNOWN) [Suspect]
     Indication: DIABETES MELLITUS
     Dosage: 1000 MG, BID
     Route: 065
  2. METFORMIN (UNKNOWN) [Suspect]
     Dosage: 500 MG, BID
     Route: 065
  3. FENOFIBRATE (UNKNOWN) [Suspect]
     Indication: DYSLIPIDAEMIA
     Dosage: UNKNOWN
     Route: 065
  4. ACETYLSALICYLIC ACID [Concomitant]
     Indication: PRODUCT USED FOR UNKNOWN INDICATION
     Dosage: UNKNOWN
     Route: 065
  5. SITAGLIPTIN [Suspect]
     Indication: TYPE 2 DIABETES MELLITUS
     Dosage: 50 MG, BID
     Route: 065

REACTIONS (4)
  - Diarrhoea [Recovered/Resolved]
  - Vomiting [Unknown]
  - Abdominal discomfort [Unknown]
  - Nausea [Unknown]
